FAERS Safety Report 24274242 (Version 4)
Quarter: 2024Q4

REPORT INFORMATION
  Report Type: Report from Study
  Country: US (occurrence: US)
  Receive Date: 20240902
  Receipt Date: 20241106
  Transmission Date: 20250115
  Serious: No
  Sender: MIRUM PHARMACEUTICALS
  Company Number: US-MIRUM PHARMACEUTICALS, INC.-US-MIR-24-00644

PATIENT
  Age: 4 Year
  Sex: Female
  Weight: 55.6 kg

DRUGS (2)
  1. LIVMARLI [Suspect]
     Active Substance: MARALIXIBAT CHLORIDE
     Indication: Bilirubin excretion disorder
     Dosage: 1.5 MILLILITER, QD
     Route: 048
     Dates: start: 20240913, end: 2024
  2. LIVMARLI [Suspect]
     Active Substance: MARALIXIBAT CHLORIDE
     Dosage: UNK UNK, QD
     Route: 048
     Dates: start: 20240808

REACTIONS (5)
  - Skin texture abnormal [Recovering/Resolving]
  - Hepatic enzyme increased [Unknown]
  - Diarrhoea [Recovered/Resolved]
  - Abdominal discomfort [Not Recovered/Not Resolved]
  - Off label use [Unknown]

NARRATIVE: CASE EVENT DATE: 20240801
